FAERS Safety Report 6414505-5 (Version None)
Quarter: 2009Q4

REPORT INFORMATION
  Report Type: 
  Country: None (occurrence: None)
  Receive Date: 20091026
  Receipt Date: 20091021
  Transmission Date: 20100525
  Serious: Yes (Other)
  Sender: FDA-Public Use
  Company Number: FR-WYE-G04328209

PATIENT
  Sex: Male
  Weight: 80 kg

DRUGS (3)
  1. TORISEL [Suspect]
     Indication: RENAL CANCER METASTATIC
     Route: 042
     Dates: start: 20090814, end: 20090821
  2. TORISEL [Suspect]
     Route: 042
     Dates: start: 20090915, end: 20090922
  3. ARIXTRA [Suspect]
     Route: 042
     Dates: start: 20090814, end: 20090828

REACTIONS (4)
  - PURPURA [None]
  - RASH VESICULAR [None]
  - SKIN NECROSIS [None]
  - THROMBOCYTOPENIA [None]
